FAERS Safety Report 4337767-7 (Version None)
Quarter: 2004Q2

REPORT INFORMATION
  Report Type: 
  Country: None (occurrence: None)
  Receive Date: 20040413
  Receipt Date: 20031209
  Transmission Date: 20050107
  Serious: Yes (Other)
  Sender: FDA-Public Use
  Company Number: PHEH2003US11372

PATIENT
  Age: 39 Year
  Sex: Female
  Weight: 86 kg

DRUGS (3)
  1. ZELNORM [Suspect]
     Indication: IRRITABLE BOWEL SYNDROME
     Dosage: 3 MG, BID
     Dates: start: 20030520, end: 20030919
  2. NEXIUM [Concomitant]
     Indication: GASTROOESOPHAGEAL REFLUX DISEASE
     Dosage: 40 MG, QD
  3. LOESTRIN 1.5/30 [Concomitant]
     Indication: CONTRACEPTION
     Dosage: 1.5/30 /QD

REACTIONS (3)
  - ABDOMINAL PAIN [None]
  - LIPASE INCREASED [None]
  - PANCREATITIS [None]
